FAERS Safety Report 11568935 (Version 1)
Quarter: 2015Q3

REPORT INFORMATION
  Report Type: Spontaneous
  Country: US (occurrence: None)
  Receive Date: 20150928
  Receipt Date: 20150928
  Transmission Date: 20151125
  Serious: Yes (Disabling)
  Sender: FDA-Public Use
  Company Number: None

PATIENT
  Age: 69 Year
  Sex: Female
  Weight: 71.67 kg

DRUGS (13)
  1. FLEETS ENEMA [Concomitant]
  2. PRUNE AND APPLE JUICE [Concomitant]
  3. ACETAMINOPHEN?HYDROCODONE 5-325 [Suspect]
     Active Substance: ACETAMINOPHEN\HYDROCODONE
     Indication: PROCEDURAL PAIN
     Dosage: 1-2 PILLS
     Route: 048
     Dates: start: 20150903, end: 20150905
  4. MONTELUKAST SODIUM TABLET [Concomitant]
  5. COLACE [Concomitant]
     Active Substance: DOCUSATE SODIUM
  6. WALGREENS SMOOTH LAX [Concomitant]
  7. ALBUTEROL SULFATE NEBULIZER SOLUTION [Concomitant]
  8. ADVAIR DISKUS [Concomitant]
     Active Substance: FLUTICASONE PROPIONATE\SALMETEROL XINAFOATE
  9. ASPIRIN. [Concomitant]
     Active Substance: ASPIRIN
  10. SENOKOTXTRA [Concomitant]
     Active Substance: SENNOSIDES
  11. DUCOLAX SUPPOSITORY [Concomitant]
  12. MAGNELEVURES [Concomitant]
  13. PRUNES [Concomitant]

REACTIONS (2)
  - Gastrointestinal hypomotility [None]
  - Drug ineffective [None]

NARRATIVE: CASE EVENT DATE: 20150903
